FAERS Safety Report 8910739 (Version 2)
Quarter: 2013Q2

REPORT INFORMATION
  Report Type: Spontaneous
  Country: GB (occurrence: None)
  Receive Date: 20121113
  Receipt Date: 20130517
  Transmission Date: 20140414
  Serious: Yes (Hospitalization, Other)
  Sender: FDA-Public Use
  Company Number: GER/UKI/12/0026546

PATIENT
  Age: 34 Year
  Sex: Male

DRUGS (5)
  1. AMLODIPINE [Suspect]
     Indication: HYPERTENSION
  2. SIMPONI [Suspect]
     Indication: ANKYLOSING SPONDYLITIS
     Dosage: 100 MG,  1 IN 1 M,  SUBCUTANEOUS
     Route: 058
     Dates: start: 20120912
  3. LANSOPRAZOLE [Concomitant]
  4. NYSTATIN [Concomitant]
  5. PERINDOPRIL [Concomitant]

REACTIONS (7)
  - Hypertension [None]
  - Oral candidiasis [None]
  - Pharyngitis [None]
  - Syncope [None]
  - Haematemesis [None]
  - Fall [None]
  - Barrett^s oesophagus [None]
